FAERS Safety Report 9157524 (Version 2)
Quarter: 2013Q4

REPORT INFORMATION
  Report Type: Spontaneous
  Country: US (occurrence: None)
  Receive Date: 20130219
  Receipt Date: 20131108
  Transmission Date: 20140711
  Serious: Yes (Hospitalization, Other)
  Sender: FDA-Public Use
  Company Number: ACO_34201_2013

PATIENT
  Age: 68 Year
  Sex: Female

DRUGS (6)
  1. AMPYRA (DALFAMPRIDINE) TABLET, 10MG [Suspect]
     Indication: MULTIPLE SCLEROSIS
     Dates: start: 20121005, end: 20130201
  2. BENADRYL (DIPHENHYDRAMINE HYDROCHLORIDE) [Concomitant]
  3. LOPRESSOR (METOPROLOL TARTRATE) [Concomitant]
  4. LOSARTAN (LOSARTAN POTASSIUM0 [Concomitant]
  5. MIRADEX (DEXAMETHASONE SODIUM PHOSPHATE, NAPHAZOLINE HYDROCHLORIDE) [Concomitant]
  6. VITAMIN D (ERGOCALCIFEROL) [Concomitant]

REACTIONS (5)
  - Tachycardia [None]
  - Chest pain [None]
  - Dyspnoea [None]
  - Basedow^s disease [None]
  - Systemic lupus erythematosus [None]
